FAERS Safety Report 6373618-7 (Version None)
Quarter: 2009Q3

REPORT INFORMATION
  Report Type: 
  Country: None (occurrence: None)
  Receive Date: 20090924
  Receipt Date: 20090914
  Transmission Date: 20100115
  Serious: Yes (Other)
  Sender: FDA-Public Use
  Company Number: US-PFIZER INC-2009269403

PATIENT
  Sex: Female

DRUGS (6)
  1. DEPO-PROVERA [Suspect]
     Indication: CONTRACEPTION
     Dosage: UNK
     Dates: start: 20090201
  2. DEPO-PROVERA [Suspect]
     Dosage: UNK
     Dates: start: 20090801
  3. ULTRAM [Concomitant]
  4. PROZAC [Suspect]
  5. INDERAL [Concomitant]
  6. LIBRIUM [Concomitant]

REACTIONS (18)
  - ABDOMINAL PAIN UPPER [None]
  - ABORTION SPONTANEOUS INCOMPLETE [None]
  - ACNE [None]
  - BACK PAIN [None]
  - DEPRESSION [None]
  - DIABETES MELLITUS [None]
  - FATIGUE [None]
  - FLATULENCE [None]
  - HEADACHE [None]
  - INAPPROPRIATE SCHEDULE OF DRUG ADMINISTRATION [None]
  - MUSCLE SPASMS [None]
  - MUSCULOSKELETAL PAIN [None]
  - PAIN IN EXTREMITY [None]
  - RASH [None]
  - RESPIRATORY TRACT INFECTION [None]
  - UNINTENDED PREGNANCY [None]
  - VAGINAL HAEMORRHAGE [None]
  - WEIGHT INCREASED [None]
